FAERS Safety Report 9115655 (Version 1)
Quarter: 2013Q1

REPORT INFORMATION
  Report Type: Spontaneous
  Country: US (occurrence: US)
  Receive Date: 20130225
  Receipt Date: 20130225
  Transmission Date: 20140127
  Serious: No
  Sender: FDA-Public Use
  Company Number: US-BRISTOL-MYERS SQUIBB COMPANY-17047051

PATIENT
  Sex: Female

DRUGS (1)
  1. KENALOG [Suspect]
     Dosage: 29-MAR-2012, 11MAY2012, 07JUN2012

REACTIONS (5)
  - Dizziness [Unknown]
  - Syncope [Unknown]
  - Nausea [Unknown]
  - Vomiting [Unknown]
  - Headache [Unknown]
